FAERS Safety Report 8964498 (Version 1)
Quarter: 2012Q4

REPORT INFORMATION
  Report Type: Report from Study
  Country: BR (occurrence: BR)
  Receive Date: 20121214
  Receipt Date: 20121214
  Transmission Date: 20130627
  Serious: Yes (Other)
  Sender: FDA-Public Use
  Company Number: BR-ROCHE-1051985

PATIENT
  Sex: Female

DRUGS (6)
  1. TOCILIZUMAB [Suspect]
     Indication: RHEUMATOID ARTHRITIS
     Route: 042
     Dates: start: 20110303, end: 20110905
  2. TOCILIZUMAB [Suspect]
     Route: 065
     Dates: start: 20110805
  3. TOCILIZUMAB [Suspect]
     Route: 065
     Dates: start: 20110801
  4. TOCILIZUMAB [Suspect]
     Route: 065
     Dates: start: 20110701
  5. TOCILIZUMAB [Suspect]
     Route: 065
     Dates: start: 20110617
  6. TOCILIZUMAB [Suspect]
     Route: 065
     Dates: start: 20110528

REACTIONS (2)
  - Pregnancy [Unknown]
  - Eclampsia [Recovered/Resolved]
